FAERS Safety Report 6310593-5 (Version None)
Quarter: 2009Q3

REPORT INFORMATION
  Report Type: 
  Country: None (occurrence: None)
  Receive Date: 20090814
  Receipt Date: 20090610
  Transmission Date: 20100115
  Serious: Yes (Hospitalization, Other)
  Sender: FDA-Public Use
  Company Number: US-BRISTOL-MYERS SQUIBB COMPANY-14650550

PATIENT
  Age: 36 Year
  Sex: Female

DRUGS (8)
  1. IXEMPRA KIT [Suspect]
     Indication: BREAST CANCER METASTATIC
     Dosage: RECEIVED ON 19MAR09 AND 9APR09  CYCLE 1:58MG CYCLE 2:55MG
     Route: 042
     Dates: start: 20090409, end: 20090409
  2. IXEMPRA KIT [Suspect]
     Indication: METASTASES TO CENTRAL NERVOUS SYSTEM
     Dosage: RECEIVED ON 19MAR09 AND 9APR09  CYCLE 1:58MG CYCLE 2:55MG
     Route: 042
     Dates: start: 20090409, end: 20090409
  3. XELODA [Suspect]
     Indication: BREAST CANCER METASTATIC
     Dosage: ON 3/19 FOR 14 DAYS AND ON 4/9 FOR 14 DAYS EVERY 3 WEEKS
     Dates: start: 20090409, end: 20090409
  4. XELODA [Suspect]
     Indication: METASTASES TO CENTRAL NERVOUS SYSTEM
     Dosage: ON 3/19 FOR 14 DAYS AND ON 4/9 FOR 14 DAYS EVERY 3 WEEKS
     Dates: start: 20090409, end: 20090409
  5. ADRIAMYCIN PFS [Suspect]
     Indication: BREAST CANCER METASTATIC
  6. ADRIAMYCIN PFS [Suspect]
     Indication: METASTASES TO CENTRAL NERVOUS SYSTEM
  7. RADIATION THERAPY [Suspect]
     Indication: BREAST CANCER METASTATIC
  8. RADIATION THERAPY [Suspect]
     Indication: METASTASES TO CENTRAL NERVOUS SYSTEM

REACTIONS (5)
  - CARDIOMYOPATHY [None]
  - FEBRILE NEUTROPENIA [None]
  - GASTROINTESTINAL HAEMORRHAGE [None]
  - SEPSIS [None]
  - THROMBOCYTOPENIA [None]
